FAERS Safety Report 6773165-4 (Version None)
Quarter: 2010Q2

REPORT INFORMATION
  Report Type: 
  Country: None (occurrence: None)
  Receive Date: 20100616
  Receipt Date: 20100331
  Transmission Date: 20101027
  Serious: Yes (Other)
  Sender: FDA-Public Use
  Company Number: US-ABBOTT-09P-163-0607736-00

PATIENT
  Sex: Male
  Weight: 75.364 kg

DRUGS (3)
  1. TRILIPIX [Suspect]
     Indication: HYPERLIPIDAEMIA
     Route: 048
     Dates: start: 20091104, end: 20091108
  2. TRILIPIX [Suspect]
     Indication: BLOOD TRIGLYCERIDES INCREASED
  3. TRILIPIX [Suspect]
     Indication: FAMILIAL RISK FACTOR

REACTIONS (1)
  - HEPATITIS [None]
